FAERS Safety Report 6611070 (Version 2)
Quarter: 2020Q3

REPORT INFORMATION
  Report Type: Report from Study
  Country: US (occurrence: US)
  Receive Date: 20080410
  Receipt Date: 20080501
  Transmission Date: 20201104
  Serious: Yes (Death)
  Sender: FDA-Public Use
  Company Number: US-ROCHE-556898

PATIENT
  Age: 72 Year
  Sex: Female

DRUGS (23)
  1. VITAMINS NOS [Concomitant]
     Active Substance: VITAMINS
  2. MULTI?VITAMIN [Concomitant]
     Active Substance: .ALPHA.-TOCOPHEROL ACETATE, DL-\ASCORBIC ACID\CYANOCOBALAMIN\FLUORIDE ION\FOLIC ACID\NIACIN\PYRIDOXINE\RIBOFLAVIN\THIAMINE\VITAMIN A\VITAMIN D
  3. MULTI?VITAMIN [Concomitant]
     Active Substance: .ALPHA.-TOCOPHEROL ACETATE, DL-\ASCORBIC ACID\CYANOCOBALAMIN\FLUORIDE ION\FOLIC ACID\NIACIN\PYRIDOXINE\RIBOFLAVIN\THIAMINE\VITAMIN A\VITAMIN D
  4. CALCIUM CITRATE/VITAMIN D3 [Concomitant]
     Dosage: CALCIUM 630 MG D3 400 MG
  5. LEXAPRO [Concomitant]
     Active Substance: ESCITALOPRAM OXALATE
     Indication: DEPRESSION
  6. CALCIUM CITRATE [Concomitant]
     Active Substance: CALCIUM CITRATE
     Dosage: CALCIUM 630 MG D3 400 MG
  7. GLUCOSAMINE [Concomitant]
     Active Substance: GLUCOSAMINE
  8. PREVACID [Concomitant]
     Active Substance: LANSOPRAZOLE
     Dosage: HALF HOUR BEFORE BREAKFAST
  9. MULTI?VITAMIN [Concomitant]
     Active Substance: .ALPHA.-TOCOPHEROL ACETATE, DL-\ASCORBIC ACID\CYANOCOBALAMIN\FLUORIDE ION\FOLIC ACID\NIACIN\PYRIDOXINE\RIBOFLAVIN\THIAMINE\VITAMIN A\VITAMIN D
  10. MULTI?VITAMIN [Concomitant]
     Active Substance: .ALPHA.-TOCOPHEROL ACETATE, DL-\ASCORBIC ACID\CYANOCOBALAMIN\FLUORIDE ION\FOLIC ACID\NIACIN\PYRIDOXINE\RIBOFLAVIN\THIAMINE\VITAMIN A\VITAMIN D
  11. CENTRUM SILVER [Concomitant]
     Active Substance: MINERALS\VITAMINS
  12. DEPAKOTE [Concomitant]
     Active Substance: DIVALPROEX SODIUM
     Dosage: 2 IN MORNING AND 2 AT DINNER TIME
  13. IBANDRONIC ACID. [Suspect]
     Active Substance: IBANDRONIC ACID
     Indication: OSTEOPOROSIS
     Dosage: START DATE: LATE 2000; FOR BONE DENSITY
     Route: 065
     Dates: start: 200010, end: 20070501
  14. CHONDROITIN SULFATE (BOVINE) [Concomitant]
     Active Substance: CHONDROITIN SULFATE (BOVINE)
  15. TYLENOL [Concomitant]
     Active Substance: ACETAMINOPHEN
     Dosage: EXTRASTRENGTH: AS NEEDED
  16. ENABLEX [Concomitant]
     Active Substance: DARIFENACIN HYDROBROMIDE
  17. FLECAINIDE [Concomitant]
     Active Substance: FLECAINIDE
  18. PRIMIDONE. [Concomitant]
     Active Substance: PRIMIDONE
     Dosage: HALF TAB AT BEDTIME FOR SIX NIGHTS INCREASE TO 1 TO 2 TAB AS NEEDED
  19. ASPIRIN. [Concomitant]
     Active Substance: ASPIRIN
     Indication: CARDIAC DISORDER
     Dosage: ONCE DAILY AT BEDTIME
  20. ROSE HIPS [Concomitant]
  21. CENTRUM SILVER [Concomitant]
     Active Substance: MINERALS\VITAMINS
  22. ARICEPT [Concomitant]
     Active Substance: DONEPEZIL HYDROCHLORIDE
     Indication: DEMENTIA
     Dosage: AT BEDTIME
  23. MULTI?VITAMIN [Concomitant]
     Active Substance: .ALPHA.-TOCOPHEROL ACETATE, DL-\ASCORBIC ACID\CYANOCOBALAMIN\FLUORIDE ION\FOLIC ACID\NIACIN\PYRIDOXINE\RIBOFLAVIN\THIAMINE\VITAMIN A\VITAMIN D

REACTIONS (1)
  - Death [Fatal]

NARRATIVE: CASE EVENT DATE: 20070514
